FAERS Safety Report 14458494 (Version 1)
Quarter: 2018Q1

REPORT INFORMATION
  Report Type: Spontaneous
  Country: US (occurrence: US)
  Receive Date: 20180130
  Receipt Date: 20180130
  Transmission Date: 20180509
  Serious: Yes (Other)
  Sender: FDA-Public Use
  Company Number: US-DSJP-DSU-2017-147218

PATIENT

DRUGS (1)
  1. OLMESARTAN MEDOXOMIL. [Suspect]
     Active Substance: OLMESARTAN MEDOXOMIL
     Indication: PRODUCT USED FOR UNKNOWN INDICATION
     Dosage: UNK
     Dates: start: 20020101, end: 20170701

REACTIONS (8)
  - Diaphragmatic hernia [Unknown]
  - Duodenitis [Unknown]
  - Large intestine polyp [Recovered/Resolved]
  - Gastritis [Unknown]
  - Diarrhoea [Recovered/Resolved]
  - Pancreatitis [Recovering/Resolving]
  - Gastrooesophageal reflux disease [Unknown]
  - Constipation [Unknown]

NARRATIVE: CASE EVENT DATE: 20030101
